FAERS Safety Report 12428414 (Version 1)
Quarter: 2016Q2

REPORT INFORMATION
  Report Type: Spontaneous
  Country: JP (occurrence: JP)
  Receive Date: 20160602
  Receipt Date: 20160602
  Transmission Date: 20160815
  Serious: Yes (Other)
  Sender: FDA-Public Use
  Company Number: PHJP1997JP002648

PATIENT
  Sex: Female
  Weight: 45 kg

DRUGS (5)
  1. SANDIMMUN [Suspect]
     Active Substance: CYCLOSPORINE
     Route: 048
     Dates: start: 199707, end: 199707
  2. SANDIMMUN [Suspect]
     Active Substance: CYCLOSPORINE
     Route: 042
     Dates: start: 199707, end: 199707
  3. SANDIMMUN [Suspect]
     Active Substance: CYCLOSPORINE
     Route: 042
     Dates: start: 199707, end: 199707
  4. MIZORIBINE [Concomitant]
     Active Substance: MIZORIBINE
     Route: 048
     Dates: start: 199707, end: 199707
  5. SANDIMMUN SIM+CAP [Suspect]
     Active Substance: CYCLOSPORINE
     Route: 048
     Dates: start: 199707, end: 199707

REACTIONS (1)
  - Anuria [Recovered/Resolved]
